FAERS Safety Report 7824254-4 (Version None)
Quarter: 2011Q4

REPORT INFORMATION
  Report Type: 
  Country: None (occurrence: None)
  Receive Date: 20111014
  Receipt Date: 20111003
  Transmission Date: 20120403
  Serious: Yes (Other)
  Sender: FDA-Public Use
  Company Number: 2011MA014876

PATIENT
  Sex: Male

DRUGS (1)
  1. PROMETHAZINE HCL [Suspect]
     Indication: SLEEP DISORDER
     Dosage: 1 TABLET;

REACTIONS (2)
  - VISUAL IMPAIRMENT [None]
  - DRUG INEFFECTIVE [None]
